FAERS Safety Report 8395331-7 (Version None)
Quarter: 2012Q2

REPORT INFORMATION
  Report Type: 
  Country: None (occurrence: None)
  Receive Date: 20120530
  Receipt Date: 20120517
  Transmission Date: 20120825
  Serious: Yes (Hospitalization)
  Sender: FDA-Public Use
  Company Number: AU-FRI-1000030789

PATIENT
  Age: 23 Year
  Sex: Female

DRUGS (1)
  1. LEXAPRO [Suspect]
     Indication: DEPRESSION
     Dosage: 10 MG
     Route: 048

REACTIONS (6)
  - BREAST PAIN [None]
  - BREAST DISCHARGE [None]
  - DEPRESSION [None]
  - GALACTORRHOEA [None]
  - PSYCHOMOTOR HYPERACTIVITY [None]
  - BREAST SWELLING [None]
